FAERS Safety Report 7080810-5 (Version None)
Quarter: 2010Q4

REPORT INFORMATION
  Report Type: 
  Country: None (occurrence: None)
  Receive Date: 20101102
  Receipt Date: 20101102
  Transmission Date: 20110411
  Serious: Yes (Life-Threatening)
  Sender: FDA-Public Use
  Company Number: None

PATIENT
  Age: 62 Year
  Sex: Male
  Weight: 67.1324 kg

DRUGS (2)
  1. TYLENOL PRECISE METHY SALICYLATE 30% MCNEIL-PPC, INC. [Suspect]
     Indication: ARTHRALGIA
     Dosage: APPLY TO AFFECTED AREA 3 TIMES A DAY MAX TOP
     Route: 061
     Dates: start: 20101028, end: 20101028
  2. TYLENOL ARTHRITIS STRENGTH [Concomitant]

REACTIONS (5)
  - DYSPNOEA [None]
  - ERYTHEMA [None]
  - HYPERSENSITIVITY [None]
  - MEDICATION ERROR [None]
  - SWELLING [None]
